FAERS Safety Report 8072173-3 (Version None)
Quarter: 2012Q1

REPORT INFORMATION
  Report Type: 
  Country: None (occurrence: None)
  Receive Date: 20120126
  Receipt Date: 20120123
  Transmission Date: 20120608
  Serious: Yes (Other)
  Sender: FDA-Public Use
  Company Number: US-PFIZER INC-2010039982

PATIENT
  Sex: Female
  Weight: 59.41 kg

DRUGS (5)
  1. CHANTIX [Suspect]
     Indication: SMOKING CESSATION THERAPY
     Dosage: 0.5 MG, DAILY
     Route: 048
     Dates: start: 20100210, end: 20100101
  2. PROGESTERONE [Concomitant]
     Indication: MENOPAUSE
     Dosage: UNK
  3. ESTRADIOL [Concomitant]
     Indication: MENOPAUSE
     Dosage: UNK
  4. CHANTIX [Suspect]
     Dosage: 1 MG, 2X/DAY
     Route: 048
     Dates: start: 20100101
  5. WELLBUTRIN [Concomitant]
     Dosage: UNK

REACTIONS (7)
  - ABDOMINAL DISTENSION [None]
  - NAUSEA [None]
  - CONSTIPATION [None]
  - ANXIETY [None]
  - INSOMNIA [None]
  - ABNORMAL DREAMS [None]
  - ARTHRALGIA [None]
